FAERS Safety Report 7536871-X (Version None)
Quarter: 2011Q2

REPORT INFORMATION
  Report Type: 
  Country: None (occurrence: None)
  Receive Date: 20110609
  Receipt Date: 20110602
  Transmission Date: 20111010
  Serious: Yes (Hospitalization, Other)
  Sender: FDA-Public Use
  Company Number: US-ROCHE-780742

PATIENT
  Sex: Male
  Weight: 61.4 kg

DRUGS (9)
  1. BENZODIAZEPINES [Concomitant]
  2. HYDROCHLOROTHIAZIDE [Concomitant]
     Dosage: DRUG REPORTED AS HTCZ.
  3. CARISOPRODOL [Concomitant]
  4. SIMVASTATIN [Concomitant]
  5. PLAVIX [Concomitant]
  6. HYOSCYAMINE [Concomitant]
  7. VALIUM [Suspect]
     Indication: IRRITABLE BOWEL SYNDROME
     Dosage: FREQUENCY: TID/PRN
     Route: 048
  8. NORFLOXACIN [Concomitant]
  9. NIASPAN [Concomitant]

REACTIONS (4)
  - SYNCOPE [None]
  - DRUG SCREEN FALSE POSITIVE [None]
  - SUICIDE ATTEMPT [None]
  - SCREAMING [None]
